FAERS Safety Report 9453943 (Version 1)
Quarter: 2013Q3

REPORT INFORMATION
  Report Type: Spontaneous
  Country: RO (occurrence: RO)
  Receive Date: 20130812
  Receipt Date: 20130812
  Transmission Date: 20140515
  Serious: Yes (Hospitalization, Other)
  Sender: FDA-Public Use
  Company Number: RO-SANOFI-AVENTIS-2013SA079259

PATIENT
  Age: 57 Year
  Sex: Female

DRUGS (9)
  1. PREDNISONE [Suspect]
     Indication: GLOMERULONEPHRITIS CHRONIC
     Route: 065
     Dates: start: 201003, end: 201004
  2. SPIRONOLACTONE [Suspect]
     Indication: PRODUCT USED FOR UNKNOWN INDICATION
     Route: 065
     Dates: start: 201006
  3. FUROSEMIDE [Suspect]
     Indication: PRODUCT USED FOR UNKNOWN INDICATION
     Route: 065
     Dates: start: 201006
  4. PROTON PUMP INHIBITORS [Suspect]
     Indication: GASTRIC DISORDER
     Route: 065
     Dates: start: 201003
  5. AMLODIPINE [Concomitant]
     Indication: BLOOD PRESSURE MANAGEMENT
     Dates: start: 201003
  6. ANTIBIOTICS [Concomitant]
     Dates: start: 201004
  7. BIGUANIDES [Concomitant]
     Indication: DIABETES MELLITUS
     Dates: start: 201004
  8. ALBUMIN [Concomitant]
  9. BLOOD TRANSFUSION, AUXILIARY PRODUCTS [Concomitant]

REACTIONS (11)
  - Strongyloidiasis [Recovering/Resolving]
  - Condition aggravated [Unknown]
  - Gastrointestinal haemorrhage [Recovering/Resolving]
  - Abdominal pain [Recovering/Resolving]
  - Nausea [Recovering/Resolving]
  - Vomiting [Recovering/Resolving]
  - Shock haemorrhagic [Recovering/Resolving]
  - Diabetes mellitus [Unknown]
  - Decreased appetite [Unknown]
  - Alkalosis [Recovered/Resolved]
  - Hypokalaemia [Recovered/Resolved]
